FAERS Safety Report 12220115 (Version 1)
Quarter: 2016Q1

REPORT INFORMATION
  Report Type: Spontaneous
  Country: CA (occurrence: CA)
  Receive Date: 20160330
  Receipt Date: 20160330
  Transmission Date: 20160526
  Serious: Yes (Other)
  Sender: FDA-Public Use
  Company Number: CA-AMGEN-CANSP2016038237

PATIENT
  Age: 47 Year
  Sex: Female

DRUGS (10)
  1. PROTANDIM [Suspect]
     Active Substance: DIETARY SUPPLEMENT
     Indication: CYSTITIS INTERSTITIAL
     Dosage: UNK
     Route: 065
  2. ENBREL [Suspect]
     Active Substance: ETANERCEPT
     Dosage: 50 MG, QWK
     Route: 058
  3. METHOTREXATE [Suspect]
     Active Substance: METHOTREXATE
     Indication: PRODUCT USED FOR UNKNOWN INDICATION
     Dosage: UNK
     Route: 065
  4. ENBREL [Suspect]
     Active Substance: ETANERCEPT
     Indication: PSORIATIC ARTHROPATHY
     Dosage: 25 MG, ONE EVRY 10 DAYS
     Route: 058
  5. AMITRIPTYLINE [Concomitant]
     Active Substance: AMITRIPTYLINE
     Dosage: UNK
  6. TETRACYCLINE [Concomitant]
     Active Substance: TETRACYCLINE
     Dosage: UNK
  7. ENBREL [Suspect]
     Active Substance: ETANERCEPT
     Dosage: 25 MG, ONE EVERY FOUR DAYS
     Route: 058
  8. SULFASALAZINE. [Suspect]
     Active Substance: SULFASALAZINE
     Indication: PRODUCT USED FOR UNKNOWN INDICATION
     Dosage: 500 MG, BID
     Route: 048
  9. ELMIRON [Concomitant]
     Active Substance: PENTOSAN POLYSULFATE SODIUM
     Dosage: UNK
  10. GOLD [Concomitant]
     Active Substance: GOLD
     Dosage: UNK

REACTIONS (15)
  - Psoriatic arthropathy [Not Recovered/Not Resolved]
  - Cystitis interstitial [Not Recovered/Not Resolved]
  - Arthralgia [Not Recovered/Not Resolved]
  - Drug effect decreased [Not Recovered/Not Resolved]
  - Joint swelling [Not Recovered/Not Resolved]
  - Muscle spasms [Not Recovered/Not Resolved]
  - Tuberculin test positive [Not Recovered/Not Resolved]
  - Underdose [Not Recovered/Not Resolved]
  - Bone pain [Not Recovered/Not Resolved]
  - Eyelid exfoliation [Not Recovered/Not Resolved]
  - Pruritus [Not Recovered/Not Resolved]
  - Tenderness [Not Recovered/Not Resolved]
  - Injection site reaction [Not Recovered/Not Resolved]
  - Pain in extremity [Not Recovered/Not Resolved]
  - Psoriasis [Not Recovered/Not Resolved]
